FAERS Safety Report 25450932 (Version 1)
Quarter: 2025Q2

REPORT INFORMATION
  Report Type: Spontaneous
  Country: US (occurrence: None)
  Receive Date: 20250618
  Receipt Date: 20250618
  Transmission Date: 20250717
  Serious: Yes (Hospitalization)
  Sender: FDA-CTU
  Company Number: None

PATIENT
  Age: 89 Year
  Sex: Male

DRUGS (7)
  1. PROMACTA [Suspect]
     Active Substance: ELTROMBOPAG OLAMINE
     Dosage: FREQ: 1 TABLET BY MOUTH EVERY DAY ON AN EMPTY STOMACH
     Route: 048
     Dates: start: 20250221
  2. ATORVASTATIN [Concomitant]
     Active Substance: ATORVASTATIN
  3. MEMANTINE [Concomitant]
     Active Substance: MEMANTINE
  4. PANTOPRAZOLE INJ SOD [Concomitant]
  5. PREDNISONE [Concomitant]
     Active Substance: PREDNISONE
  6. PROMACTA [Concomitant]
     Active Substance: ELTROMBOPAG OLAMINE
  7. QUETIAPINE [Concomitant]
     Active Substance: QUETIAPINE

REACTIONS (1)
  - Pulmonary thrombosis [None]

NARRATIVE: CASE EVENT DATE: 20250412
